FAERS Safety Report 21227005 (Version 1)
Quarter: 2022Q3

REPORT INFORMATION
  Report Type: Spontaneous
  Country: US (occurrence: None)
  Receive Date: 20220817
  Receipt Date: 20220817
  Transmission Date: 20221026
  Serious: No
  Sender: FDA-Public Use
  Company Number: None

PATIENT
  Age: 71 Year
  Sex: Female
  Weight: 68.49 kg

DRUGS (4)
  1. IBRANCE [Suspect]
     Active Substance: PALBOCICLIB
     Indication: Breast cancer female
     Dosage: OTHER FREQUENCY : 3W,1WOFF;?
     Route: 048
  2. EFFEXOR XR [Concomitant]
  3. FEMARA [Concomitant]
  4. PEPCID [Concomitant]

REACTIONS (2)
  - Full blood count decreased [None]
  - Therapy interrupted [None]
